FAERS Safety Report 8915425 (Version 2)
Quarter: 2012Q4

REPORT INFORMATION
  Report Type: 
  Country: IT (occurrence: IT)
  Receive Date: 20121119
  Receipt Date: 20121210
  Transmission Date: 20130627
  Serious: Yes (Hospitalization)
  Sender: FDA-Public Use
  Company Number: IT-PFIZER INC-2012286571

PATIENT
  Age: 70 Year
  Sex: Female

DRUGS (13)
  1. TAZOCIN [Suspect]
     Indication: POSTOPERATIVE WOUND INFECTION
     Dosage: 4.5 g, 3x/day
     Route: 042
     Dates: start: 20120920, end: 20121016
  2. DOMPERIDONE [Concomitant]
     Dosage: 20 ug, 1x/day
     Route: 048
  3. VANCOMYCIN [Concomitant]
     Dosage: 3 g, 1x/day
     Route: 042
     Dates: end: 20121016
  4. PANTORC [Concomitant]
     Dosage: 40 mg, UNK
     Route: 048
  5. TACHIPIRINA [Concomitant]
     Dosage: 1000 mg, as needed
     Route: 048
  6. LEDERFOLIN [Concomitant]
     Dosage: 7.5 mg, UNK
  7. FEMIPRES [Concomitant]
     Dosage: 7.5 mg, UNK
     Route: 048
  8. DELTACORTENE [Concomitant]
     Dosage: 12.5 mg, UNK
     Route: 048
  9. DUROGESIC [Concomitant]
     Dosage: 25 ug/h one patch every 3 days
  10. RIFADIN [Concomitant]
     Dosage: 1200 mg, UNK
     Route: 048
  11. SELEPARINA [Concomitant]
     Dosage: 3800 IU, UNK
     Route: 058
  12. LYRICA [Concomitant]
     Dosage: 150 mg, UNK
     Route: 048
  13. LEXOTAN [Concomitant]
     Dosage: 10 drops

REACTIONS (1)
  - Stevens-Johnson syndrome [Recovered/Resolved]
